FAERS Safety Report 7375406-1 (Version None)
Quarter: 2011Q1

REPORT INFORMATION
  Report Type: 
  Country: None (occurrence: None)
  Receive Date: 20110325
  Receipt Date: 20101117
  Transmission Date: 20110831
  Serious: Yes (Other)
  Sender: FDA-Public Use
  Company Number: PHHY2010CA74487

PATIENT
  Sex: Female
  Weight: 70.5 kg

DRUGS (5)
  1. EXTAVIA [Suspect]
     Indication: MULTIPLE SCLEROSIS
     Dosage: 6 MIU, QOD
     Route: 058
     Dates: start: 20101104, end: 20101117
  2. EXTAVIA [Suspect]
     Indication: RELAPSING-REMITTING MULTIPLE SCLEROSIS
     Dosage: 4 MIU, EVERY OTHER DAY
     Route: 058
     Dates: start: 20101022
  3. DETROL [Concomitant]
  4. GABAPENTIN [Concomitant]
     Dosage: UNK
  5. TRAZODONE [Concomitant]
     Dosage: UNK

REACTIONS (10)
  - MUSCLE SPASMS [None]
  - URTICARIA [None]
  - HYPOKINESIA [None]
  - INJECTION SITE RASH [None]
  - RASH GENERALISED [None]
  - INJECTION SITE HAEMATOMA [None]
  - INJECTION SITE DISCOLOURATION [None]
  - INJECTION SITE URTICARIA [None]
  - INJECTION SITE PRURITUS [None]
  - INJECTION SITE PAIN [None]
